FAERS Safety Report 9186464 (Version 1)
Quarter: 2013Q1

REPORT INFORMATION
  Report Type: Report from Study
  Country: FR (occurrence: FR)
  Receive Date: 20130325
  Receipt Date: 20130325
  Transmission Date: 20140127
  Serious: Yes (Life-Threatening, Hospitalization)
  Sender: FDA-Public Use
  Company Number: FR-CELGENEUS-056-C4047-12111375

PATIENT
  Age: 53 Year
  Sex: Male
  Weight: 69 kg

DRUGS (20)
  1. CC-4047 [Suspect]
     Indication: PLASMA CELL MYELOMA
     Route: 048
     Dates: start: 20120927
  2. CC-4047 [Suspect]
     Dosage: 4 MILLIGRAM
     Route: 048
     Dates: start: 20121025, end: 20121107
  3. DEXAMETHASONE [Suspect]
     Indication: PLASMA CELL MYELOMA
     Route: 065
     Dates: start: 20120927
  4. DEXAMETHASONE [Suspect]
     Dosage: 40 MILLIGRAM
     Route: 065
     Dates: start: 20121025, end: 20121108
  5. DEXAMETHASONE [Suspect]
     Route: 065
     Dates: start: 20121122
  6. OXYCODONE [Concomitant]
     Indication: BONE PAIN
     Route: 048
     Dates: start: 20101012, end: 20121106
  7. ZELITREX [Concomitant]
     Indication: INFECTION PROPHYLAXIS
     Route: 048
     Dates: start: 20100416, end: 20121106
  8. WELLVONE [Concomitant]
     Indication: INFECTION PROPHYLAXIS
     Route: 048
     Dates: start: 20100416, end: 20121106
  9. EPREX [Concomitant]
     Indication: ANAEMIA
     Dosage: UNITS
     Route: 058
     Dates: start: 20100416, end: 20121106
  10. ORACILLINE [Concomitant]
     Indication: INFECTION PROPHYLAXIS
     Dosage: M UI
     Route: 048
     Dates: start: 20100718, end: 20121106
  11. LEVOTHYROX [Concomitant]
     Indication: HYPOTHYROIDISM
     Route: 048
     Dates: start: 20111001
  12. NEXIUM [Concomitant]
     Indication: PROPHYLAXIS AGAINST GASTROINTESTINAL ULCER
     Route: 048
     Dates: start: 20120810
  13. ROCEPHINE [Concomitant]
     Indication: INFECTION PROPHYLAXIS
     Route: 041
     Dates: start: 20121107
  14. ROCEPHINE [Concomitant]
     Route: 041
     Dates: start: 20121107, end: 20121109
  15. CONTRAMAL [Concomitant]
     Indication: BONE PAIN
     Route: 048
     Dates: start: 20121107, end: 20121110
  16. OFLOCET [Concomitant]
     Indication: INFECTION PROPHYLAXIS
     Route: 048
     Dates: start: 20121107, end: 20121110
  17. OFLOCET [Concomitant]
     Route: 048
     Dates: start: 20121111, end: 20121113
  18. OXYCONTIN [Concomitant]
     Indication: BONE PAIN
     Route: 048
     Dates: start: 20101012, end: 20121101
  19. AUGMENTIN [Concomitant]
     Indication: INFECTION PROPHYLAXIS
     Route: 048
     Dates: start: 20121111, end: 20121112
  20. LOVENOX [Concomitant]
     Indication: THROMBOSIS PROPHYLAXIS
     Dosage: .4 MILLILITER
     Route: 065
     Dates: start: 20120927

REACTIONS (2)
  - Anaemia [Recovered/Resolved]
  - Hypercalcaemia [Not Recovered/Not Resolved]
